FAERS Safety Report 19183411 (Version 1)
Quarter: 2021Q2

REPORT INFORMATION
  Report Type: Spontaneous
  Country: CN (occurrence: CN)
  Receive Date: 20210427
  Receipt Date: 20210427
  Transmission Date: 20210717
  Serious: Yes (Other)
  Sender: FDA-Public Use
  Company Number: CN-ROCHE-2814991

PATIENT
  Sex: Female
  Weight: 49 kg

DRUGS (10)
  1. SODIUM CHLORIDE. [Concomitant]
     Active Substance: SODIUM CHLORIDE
     Dosage: SOLVENT FOR VINDESINE SULFATE FOR INJECTION
     Route: 042
     Dates: start: 20190716, end: 20190716
  2. RITUXIMAB. [Suspect]
     Active Substance: RITUXIMAB
     Route: 041
     Dates: start: 20190715, end: 20190715
  3. CYCLOPHOSPHAMIDE. [Suspect]
     Active Substance: CYCLOPHOSPHAMIDE
     Indication: GASTROINTESTINAL LYMPHOMA
     Route: 041
     Dates: start: 20190716, end: 20190716
  4. SODIUM CHLORIDE. [Concomitant]
     Active Substance: SODIUM CHLORIDE
     Dosage: SOLVENT FOR RITUXIMAB
     Route: 041
     Dates: start: 20190715, end: 20190715
  5. SODIUM CHLORIDE. [Concomitant]
     Active Substance: SODIUM CHLORIDE
     Dosage: SOLVENT FOR CYCLOPHOSPHAMIDE FOR INJECTION
     Route: 041
     Dates: start: 20190716, end: 20190716
  6. EPIRUBICIN HYDROCHLORIDE. [Suspect]
     Active Substance: EPIRUBICIN HYDROCHLORIDE
     Indication: GASTROINTESTINAL LYMPHOMA
     Route: 041
     Dates: start: 20190716, end: 20190716
  7. VINDESINE SULFATE [Suspect]
     Active Substance: VINDESINE SULFATE
     Indication: GASTROINTESTINAL LYMPHOMA
     Route: 042
     Dates: start: 20190716, end: 20190716
  8. SODIUM CHLORIDE. [Concomitant]
     Active Substance: SODIUM CHLORIDE
     Dosage: SOLVENT FOR RITUXIMAB
     Route: 041
     Dates: start: 20190715, end: 20190715
  9. RITUXIMAB. [Suspect]
     Active Substance: RITUXIMAB
     Indication: GASTROINTESTINAL LYMPHOMA
     Route: 041
     Dates: start: 20190715, end: 20190715
  10. SODIUM CHLORIDE. [Concomitant]
     Active Substance: SODIUM CHLORIDE
     Dosage: SOLVENT FOR EPIRUBICIN HYDROCHLORIDE FOR INJECTION
     Route: 041
     Dates: start: 20190716, end: 20190716

REACTIONS (5)
  - White blood cell count decreased [Recovering/Resolving]
  - Stomatitis [Unknown]
  - Anaemia [Recovering/Resolving]
  - Agranulocytosis [Recovered/Resolved]
  - Pharyngeal ulceration [Unknown]

NARRATIVE: CASE EVENT DATE: 20190726
